FAERS Safety Report 26109746 (Version 1)
Quarter: 2025Q4

REPORT INFORMATION
  Report Type: Spontaneous
  Country: None (occurrence: IL)
  Receive Date: 20251201
  Receipt Date: 20251201
  Transmission Date: 20260117
  Serious: Yes (Death)
  Sender: ALNYLAM PHARMACEUTICALS
  Company Number: IL-ALNYLAM PHARMACEUTICALS, INC.-ALN-2025-005270

PATIENT
  Age: 80 Year

DRUGS (1)
  1. AMVUTTRA [Suspect]
     Active Substance: VUTRISIRAN
     Indication: Cardiac amyloidosis
     Dosage: 25 MILLIGRAM, Q3M

REACTIONS (2)
  - Pneumonia [Fatal]
  - Off label use [Unknown]
